FAERS Safety Report 10484998 (Version 1)
Quarter: 2014Q3

REPORT INFORMATION
  Report Type: Report from Study
  Country: AR (occurrence: AR)
  Receive Date: 20140930
  Receipt Date: 20140930
  Transmission Date: 20150326
  Serious: Yes (Other)
  Sender: FDA-Public Use
  Company Number: PHHY2014AR128081

PATIENT
  Sex: Male

DRUGS (1)
  1. DIOVAN [Suspect]
     Active Substance: VALSARTAN
     Indication: HYPERTENSION
     Dosage: 80 UKN, QD (IN THE MORNING)
     Route: 048
     Dates: start: 2009

REACTIONS (2)
  - Eye injury [Unknown]
  - Cataract [Not Recovered/Not Resolved]
